FAERS Safety Report 16105574 (Version 1)
Quarter: 2019Q2

REPORT INFORMATION
  Report Type: Spontaneous
  Country: US (occurrence: US)
  Receive Date: 20190321
  Receipt Date: 20190321
  Transmission Date: 20190711
  Serious: Yes (Disabling, Other)
  Sender: FDA-Public Use
  Company Number: None

PATIENT
  Age: 65 Year
  Sex: Female
  Weight: 59.85 kg

DRUGS (14)
  1. DOXEPIN [Concomitant]
     Active Substance: DOXEPIN
  2. ALBUTEROL. [Concomitant]
     Active Substance: ALBUTEROL
  3. DOCUSATE SODIUM. [Concomitant]
     Active Substance: DOCUSATE SODIUM
  4. AIMOVIG [Concomitant]
     Active Substance: ERENUMAB-AOOE
  5. MEMANTINE. [Concomitant]
     Active Substance: MEMANTINE
  6. VITAMIN D NOS [Concomitant]
     Active Substance: VITAMIN D NOS
  7. SENNOSIDES. [Concomitant]
     Active Substance: SENNOSIDES
  8. VALIUM [Concomitant]
     Active Substance: DIAZEPAM
  9. CALCIUM CITRATE PLUS VITAMIN D [Concomitant]
  10. MELATONIN [Concomitant]
     Active Substance: MELATONIN
  11. AIMOVIG [Suspect]
     Active Substance: ERENUMAB-AOOE
     Indication: MIGRAINE PROPHYLAXIS
     Dosage: ?          OTHER FREQUENCY:MONTHLY;?
     Route: 058
  12. BACLOFEN. [Concomitant]
     Active Substance: BACLOFEN
  13. PSYLLIUM POWDER [Concomitant]
  14. MAGNESIUM CITRATE. [Concomitant]
     Active Substance: MAGNESIUM CITRATE

REACTIONS (3)
  - Temporomandibular joint syndrome [None]
  - Bruxism [None]
  - Malocclusion [None]

NARRATIVE: CASE EVENT DATE: 20181030
